FAERS Safety Report 6720533-2 (Version None)
Quarter: 2010Q2

REPORT INFORMATION
  Report Type: 
  Country: None (occurrence: None)
  Receive Date: 20100511
  Receipt Date: 20100511
  Transmission Date: 20101027
  Serious: No
  Sender: FDA-Public Use
  Company Number: None

PATIENT
  Sex: Female
  Weight: 73.79 kg

DRUGS (1)
  1. TAXOL [Suspect]
     Dosage: 242 MG
     Dates: end: 20100505

REACTIONS (7)
  - BURNING SENSATION [None]
  - COLD SWEAT [None]
  - ERYTHEMA [None]
  - INFUSION RELATED REACTION [None]
  - PALLOR [None]
  - SCLERAL DISORDER [None]
  - TONIC CLONIC MOVEMENTS [None]
